FAERS Safety Report 5007011-6 (Version None)
Quarter: 2006Q2

REPORT INFORMATION
  Report Type: 
  Country: None (occurrence: None)
  Receive Date: 20060517
  Receipt Date: 20060505
  Transmission Date: 20061013
  Serious: Yes (Other)
  Sender: FDA-Public Use
  Company Number: 0600030US

PATIENT
  Age: 74 Year
  Sex: Male

DRUGS (1)
  1. LUMIGRAN[R] (BIMATOPROST) EYE DROPS, SOLUTION, 0.03% [Suspect]
     Indication: GLAUCOMA
     Dates: start: 20031101

REACTIONS (2)
  - LYMPHOMA [None]
  - NEOPLASM RECURRENCE [None]
